FAERS Safety Report 5496000-3 (Version None)
Quarter: 2007Q4

REPORT INFORMATION
  Report Type: 
  Country: None (occurrence: None)
  Receive Date: 20071025
  Receipt Date: 20070108
  Transmission Date: 20080405
  Serious: No
  Sender: FDA-Public Use
  Company Number: A0634756A

PATIENT
  Age: 69 Year
  Sex: Female

DRUGS (9)
  1. ADVAIR DISKUS 100/50 [Suspect]
     Indication: CHRONIC OBSTRUCTIVE PULMONARY DISEASE
     Dosage: 1PUFF TWICE PER DAY
     Route: 055
     Dates: start: 20061226, end: 20061227
  2. LIPITOR [Concomitant]
  3. TRAZODONE HCL [Concomitant]
  4. SYNTHROID [Concomitant]
  5. CELEXA [Concomitant]
  6. MULTI-VITAMIN [Concomitant]
  7. ESTRADIOL [Concomitant]
  8. ASPIRIN [Concomitant]
  9. PROMETRIUM [Concomitant]

REACTIONS (1)
  - TREMOR [None]
